FAERS Safety Report 16331377 (Version 1)
Quarter: 2019Q2

REPORT INFORMATION
  Report Type: Spontaneous
  Country: IN (occurrence: IN)
  Receive Date: 20190520
  Receipt Date: 20190520
  Transmission Date: 20190711
  Serious: Yes (Death, Other)
  Sender: FDA-Public Use
  Company Number: IN-MICRO LABS LIMITED-ML2019-01225

PATIENT
  Sex: Female

DRUGS (7)
  1. TAZOBACTAM [Suspect]
     Active Substance: TAZOBACTAM
  2. AMPICILLIN [Suspect]
     Active Substance: AMPICILLIN
  3. PIPERACILLIN. [Suspect]
     Active Substance: PIPERACILLIN SODIUM
  4. AMIKACIN. [Suspect]
     Active Substance: AMIKACIN
  5. CLINDAMYCIN. [Suspect]
     Active Substance: CLINDAMYCIN
  6. MEROPENEM. [Suspect]
     Active Substance: MEROPENEM
  7. VANCOMYCIN [Suspect]
     Active Substance: VANCOMYCIN

REACTIONS (3)
  - Septic shock [Fatal]
  - Drug ineffective [Not Recovered/Not Resolved]
  - Multiple organ dysfunction syndrome [Fatal]
